FAERS Safety Report 18695603 (Version 1)
Quarter: 2021Q1

REPORT INFORMATION
  Report Type: Spontaneous
  Country: US (occurrence: US)
  Receive Date: 20210104
  Receipt Date: 20210104
  Transmission Date: 20210419
  Serious: No
  Sender: FDA-Public Use
  Company Number: None

PATIENT
  Age: 44 Year
  Sex: Female

DRUGS (1)
  1. BAMLANIVIMAB (EUA) [Suspect]
     Active Substance: BAMLANIVIMAB
     Indication: COVID-19
     Dates: start: 20210103, end: 20210103

REACTIONS (6)
  - Myalgia [None]
  - Nausea [None]
  - Headache [None]
  - Dizziness [None]
  - Chills [None]
  - Vomiting [None]

NARRATIVE: CASE EVENT DATE: 20210103
